FAERS Safety Report 6639070-9 (Version None)
Quarter: 2010Q1

REPORT INFORMATION
  Report Type: 
  Country: None (occurrence: None)
  Receive Date: 20100317
  Receipt Date: 20100308
  Transmission Date: 20100710
  Serious: Yes (Other)
  Sender: FDA-Public Use
  Company Number: ES-WYE-H13598810

PATIENT
  Sex: Male
  Weight: 83 kg

DRUGS (2)
  1. MOROCTOCOG ALFA [Suspect]
     Indication: FACTOR VIII DEFICIENCY
     Route: 042
     Dates: start: 20090727
  2. MOROCTOCOG ALFA [Suspect]
     Indication: PROPHYLAXIS

REACTIONS (1)
  - FACTOR VIII INHIBITION [None]
